FAERS Safety Report 9423515 (Version 1)
Quarter: 2013Q3

REPORT INFORMATION
  Report Type: Spontaneous
  Country: US (occurrence: US)
  Receive Date: 20130726
  Receipt Date: 20130726
  Transmission Date: 20140515
  Serious: Yes (Hospitalization)
  Sender: FDA-Public Use
  Company Number: US-ASTRAZENECA-2013SE54138

PATIENT
  Age: 62 Year
  Sex: Female
  Weight: 127.4 kg

DRUGS (7)
  1. LISINOPRIL [Suspect]
     Route: 048
  2. AMBIEN [Suspect]
     Route: 065
  3. ALISKIREN VS PLACEBO (CODE NOT BROKEN) [Suspect]
     Indication: CARDIOVASCULAR DISORDER
     Route: 065
     Dates: start: 20100105, end: 20120102
  4. ELAVIL [Suspect]
     Route: 065
  5. CARVEDILOL [Concomitant]
  6. LASIX [Concomitant]
  7. HYDRALAZINE [Concomitant]

REACTIONS (4)
  - Cardiac failure congestive [Recovered/Resolved]
  - Bronchitis [Recovered/Resolved]
  - Atrial fibrillation [Recovered/Resolved]
  - Mental disorder [Recovered/Resolved]
